FAERS Safety Report 4571907-X (Version None)
Quarter: 2005Q1

REPORT INFORMATION
  Report Type: 
  Country: None (occurrence: None)
  Receive Date: 20050207
  Receipt Date: 20050202
  Transmission Date: 20050727
  Serious: Yes (Other)
  Sender: FDA-Public Use
  Company Number: PHNU2005DE00771

PATIENT
  Age: 74 Year
  Sex: Male

DRUGS (3)
  1. MITOXANTRONE [Concomitant]
     Indication: PROSTATE CANCER METASTATIC
     Dosage: 2 TIMES 11 CYCLES
     Route: 065
  2. VINORELBINE [Concomitant]
     Dosage: 4 CYCLES
     Route: 065
  3. ZOMETA [Suspect]
     Indication: METASTASES TO BONE
     Dosage: 4 MG, QMO
     Route: 042

REACTIONS (5)
  - BONE DISORDER [None]
  - DECUBITUS ULCER [None]
  - FISTULA [None]
  - IMPAIRED HEALING [None]
  - TOOTH EXTRACTION [None]
